FAERS Safety Report 6836516-8 (Version None)
Quarter: 2010Q3

REPORT INFORMATION
  Report Type: 
  Country: None (occurrence: None)
  Receive Date: 20100713
  Receipt Date: 20100705
  Transmission Date: 20110219
  Serious: Yes (Hospitalization)
  Sender: FDA-Public Use
  Company Number: ES-SANOFI-AVENTIS-2010SA039043

PATIENT
  Age: 62 Year
  Sex: Male

DRUGS (3)
  1. SEGURIL [Suspect]
     Indication: HYPERCALCAEMIA
     Route: 065
  2. ALLOPURINOL [Interacting]
     Indication: HYPERURICAEMIA
  3. METFORMIN [Concomitant]
     Indication: TYPE 2 DIABETES MELLITUS

REACTIONS (5)
  - CONDITION AGGRAVATED [None]
  - DRUG INTERACTION [None]
  - GRANULOMATOUS LIVER DISEASE [None]
  - HYPERCALCAEMIA [None]
  - OFF LABEL USE [None]
